FAERS Safety Report 9174002 (Version 1)
Quarter: 2013Q1

REPORT INFORMATION
  Report Type: Spontaneous
  Country: US (occurrence: None)
  Receive Date: 20130318
  Receipt Date: 20130318
  Transmission Date: 20140127
  Serious: Yes (Life-Threatening, Hospitalization)
  Sender: FDA-Public Use
  Company Number: None

PATIENT
  Age: 26 Year
  Sex: Male
  Weight: 101.5 kg

DRUGS (1)
  1. IOHEXOL [Suspect]
     Indication: SPINAL MYELOGRAM
     Dosage: 180MG ONCE IT
     Dates: start: 20130222, end: 20130222

REACTIONS (2)
  - Cardiac murmur [None]
  - Meningitis aseptic [None]
